FAERS Safety Report 18223520 (Version 1)
Quarter: 2020Q3

REPORT INFORMATION
  Report Type: Spontaneous
  Country: DK (occurrence: DK)
  Receive Date: 20200902
  Receipt Date: 20200902
  Transmission Date: 20201103
  Serious: No
  Sender: FDA-Public Use
  Company Number: DK-JNJFOC-20200833340

PATIENT
  Age: 73 Year
  Sex: Male
  Weight: 100 kg

DRUGS (1)
  1. CANAGLIFLOZIN [Suspect]
     Active Substance: CANAGLIFLOZIN
     Indication: TYPE 2 DIABETES MELLITUS
     Dosage: STRENGTH :300MG
     Route: 048
     Dates: start: 20180425

REACTIONS (1)
  - Ketonuria [Unknown]

NARRATIVE: CASE EVENT DATE: 20200601
